FAERS Safety Report 7250431-X (Version None)
Quarter: 2011Q1

REPORT INFORMATION
  Report Type: 
  Country: None (occurrence: None)
  Receive Date: 20110118
  Receipt Date: 20110111
  Transmission Date: 20110831
  Serious: Yes (Other)
  Sender: FDA-Public Use
  Company Number: 2011MA000276

PATIENT
  Age: 66 Year
  Sex: Male

DRUGS (3)
  1. BECONASE [Concomitant]
  2. AMLODIPINE BESYLATE [Suspect]
     Indication: HYPERTENSION
     Dosage: 10 MG; PO
     Route: 048
     Dates: start: 20040617, end: 20101203
  3. ATORVASTATIN [Concomitant]

REACTIONS (1)
  - GINGIVAL HYPERTROPHY [None]
